FAERS Safety Report 8080990 (Version 2)
Quarter: 2013Q2

REPORT INFORMATION
  Report Type: Spontaneous
  Country: DE (occurrence: DE)
  Receive Date: 20110809
  Receipt Date: 20130628
  Transmission Date: 20140414
  Serious: Yes (Life-Threatening)
  Sender: FDA-Public Use
  Company Number: DE-AMGEN-DEUSP2011039833

PATIENT
  Age: 51 Year
  Sex: Female

DRUGS (2)
  1. ENBREL [Suspect]
     Indication: PSORIASIS
     Dosage: 50 MG, 2X/WEEK
     Route: 065
     Dates: start: 20101206, end: 20120401
  2. DERMATOP [Concomitant]
     Dosage: UNK

REACTIONS (5)
  - Endocarditis [Unknown]
  - Renal failure [Not Recovered/Not Resolved]
  - Staphylococcal sepsis [Unknown]
  - Sepsis [Unknown]
  - Enterococcal infection [Unknown]
